FAERS Safety Report 19932732 (Version 1)
Quarter: 2021Q4

REPORT INFORMATION
  Report Type: Spontaneous
  Country: US (occurrence: US)
  Receive Date: 20211007
  Receipt Date: 20211007
  Transmission Date: 20220303
  Serious: Yes (Hospitalization)
  Sender: FDA-Public Use
  Company Number: None

PATIENT
  Age: 42 Year
  Sex: Male

DRUGS (2)
  1. COSENTYX [Suspect]
     Active Substance: SECUKINUMAB
     Indication: Psoriatic arthropathy
     Dosage: ?          OTHER FREQUENCY:MONTHLY;
     Route: 058
     Dates: start: 20200328
  2. OMEPRAZOLE [Concomitant]
     Active Substance: OMEPRAZOLE

REACTIONS (6)
  - Cerebrovascular accident [None]
  - Therapy interrupted [None]
  - Condition aggravated [None]
  - Inflammation [None]
  - Muscle tightness [None]
  - Skin disorder [None]

NARRATIVE: CASE EVENT DATE: 20210725
